FAERS Safety Report 9768982 (Version 1)
Quarter: 2013Q4

REPORT INFORMATION
  Report Type: Spontaneous
  Country: JP (occurrence: None)
  Receive Date: 20131216
  Receipt Date: 20131216
  Transmission Date: 20140711
  Serious: Yes (Other)
  Sender: FDA-Public Use
  Company Number: SYM-2013-13804

PATIENT
  Age: 72 Year
  Sex: Male

DRUGS (4)
  1. FLUOROURACIL [Suspect]
     Indication: COLON CANCER
     Route: 040
     Dates: start: 20120105, end: 20120201
  2. ELPLAT [Suspect]
     Indication: COLON CANCER
     Dates: start: 20120105, end: 20120130
  3. ERBITUX [Suspect]
     Indication: COLON CANCER
     Dates: start: 20120105, end: 20120130
  4. CALCIUM LEVOFOLINATE (CALCIUM LEVOFOLINATE) [Concomitant]

REACTIONS (2)
  - Hepatitis B [None]
  - Duodenal ulcer haemorrhage [None]
